FAERS Safety Report 16728772 (Version 1)
Quarter: 2019Q3

REPORT INFORMATION
  Report Type: Spontaneous
  Country: US (occurrence: US)
  Receive Date: 20190705
  Receipt Date: 20190705
  Transmission Date: 20191005
  Serious: No
  Sender: FDA-Public Use
  Company Number: None

PATIENT
  Sex: Female

DRUGS (1)
  1. CAPECITABINE 500MG [Suspect]
     Active Substance: CAPECITABINE
     Indication: BREAST NEOPLASM
     Route: 048
     Dates: start: 20190510

REACTIONS (7)
  - Rash [None]
  - Abdominal pain upper [None]
  - Tongue blistering [None]
  - Burning sensation [None]
  - Lip blister [None]
  - Oral mucosal blistering [None]
  - Diarrhoea [None]
